FAERS Safety Report 12233768 (Version 1)
Quarter: 2016Q2

REPORT INFORMATION
  Report Type: Spontaneous
  Country: US (occurrence: None)
  Receive Date: 20160401
  Receipt Date: 20160401
  Transmission Date: 20160815
  Serious: Yes (Other)
  Sender: FDA-Public Use
  Company Number: None

PATIENT
  Age: 24 Year
  Sex: Male
  Weight: 72.58 kg

DRUGS (2)
  1. ONE A DAY VITAMINS [Concomitant]
  2. TAMIFLU [Suspect]
     Active Substance: OSELTAMIVIR PHOSPHATE
     Route: 048
     Dates: start: 20160330, end: 20160331

REACTIONS (2)
  - Fall [None]
  - Seizure [None]

NARRATIVE: CASE EVENT DATE: 20160331
